FAERS Safety Report 25257190 (Version 1)
Quarter: 2025Q2

REPORT INFORMATION
  Report Type: Spontaneous
  Country: US (occurrence: US)
  Receive Date: 20250430
  Receipt Date: 20250430
  Transmission Date: 20250717
  Serious: No
  Sender: TEVA
  Company Number: US-TEVA-VS-3324022

PATIENT
  Age: 80 Year
  Sex: Male

DRUGS (1)
  1. TESTOSTERONE [Suspect]
     Active Substance: TESTOSTERONE
     Indication: Blood testosterone
     Dosage: TOPICAL GEL, USED THIS FOR THREE MONTHS
     Route: 065
     Dates: start: 2025

REACTIONS (3)
  - Blood testosterone increased [Not Recovered/Not Resolved]
  - Incorrect dose administered [Unknown]
  - Product use complaint [Unknown]

NARRATIVE: CASE EVENT DATE: 20250101
